FAERS Safety Report 13642997 (Version 3)
Quarter: 2017Q2

REPORT INFORMATION
  Report Type: Spontaneous
  Country: JP (occurrence: JP)
  Receive Date: 20170612
  Receipt Date: 20170629
  Transmission Date: 20170830
  Serious: Yes (Life-Threatening, Hospitalization, Other)
  Sender: FDA-Public Use
  Company Number: JP-PFIZER INC-2017226071

PATIENT
  Age: 65 Year
  Sex: Female
  Weight: 54.7 kg

DRUGS (19)
  1. EBRANTIL [Concomitant]
     Active Substance: URAPIDIL
     Dosage: 30 MG, DAILY
     Route: 048
  2. CRAVIT [Concomitant]
     Active Substance: LEVOFLOXACIN
     Dosage: 500 MG, DAILY
     Route: 048
  3. MAGNESIUM OXIDE. [Concomitant]
     Active Substance: MAGNESIUM OXIDE
     Dosage: 660 MG, 2X/DAY
     Route: 048
     Dates: start: 20120717, end: 20120826
  4. DAIOBOTAMPITO [Concomitant]
     Active Substance: HERBALS
     Dosage: 7.5 MG, DAILY
     Route: 048
  5. LYRICA [Suspect]
     Active Substance: PREGABALIN
     Dosage: 75 MG, 2X/DAY
     Route: 048
     Dates: start: 20140902, end: 20140911
  6. LYRICA [Suspect]
     Active Substance: PREGABALIN
     Dosage: 100 MG, DAILY
     Route: 048
     Dates: start: 20170224, end: 20170327
  7. RIVOTRIL [Concomitant]
     Active Substance: CLONAZEPAM
     Indication: EPILEPSY
     Dosage: 500 MG, 1X/DAY
     Route: 048
     Dates: start: 20120622
  8. MAGNESIUM OXIDE. [Concomitant]
     Active Substance: MAGNESIUM OXIDE
     Dosage: 330 MG, 2X/DAY
     Route: 048
     Dates: start: 20120817
  9. CETILO [Concomitant]
     Active Substance: SENNA LEAF
     Dosage: 9 DF, DAILY
     Route: 048
  10. TALION [Concomitant]
     Active Substance: BEPOTASTINE
     Dosage: 20 MG, DAILY
     Route: 048
  11. LYRICA [Suspect]
     Active Substance: PREGABALIN
     Indication: NEURALGIA
     Dosage: 25 MG, 2X/DAY
     Route: 048
     Dates: start: 20120707, end: 20120721
  12. LYRICA [Suspect]
     Active Substance: PREGABALIN
     Dosage: 50 MG, 2X/DAY
     Route: 048
     Dates: start: 20120817, end: 20140901
  13. LYRICA [Suspect]
     Active Substance: PREGABALIN
     Dosage: 75 MG, 2X/DAY
     Route: 048
  14. LYRICA [Suspect]
     Active Substance: PREGABALIN
     Dosage: 75 MG, 2X/DAY
     Route: 048
     Dates: start: 20140912, end: 20141018
  15. GASMOTIN [Concomitant]
     Active Substance: MOSAPRIDE CITRATE
     Dosage: 500 MG, 2X/DAY
     Route: 048
     Dates: start: 20120717
  16. GLYCERIN. [Concomitant]
     Active Substance: GLYCERIN
  17. MAGNESIUM OXIDE. [Concomitant]
     Active Substance: MAGNESIUM OXIDE
     Indication: CONSTIPATION
     Dosage: 500 MG, 1X/DAY
     Route: 048
     Dates: start: 20120622, end: 20120716
  18. GASMOTIN [Concomitant]
     Active Substance: MOSAPRIDE CITRATE
     Indication: CONSTIPATION
     Dosage: 500 MG, 1X/DAY
     Route: 048
     Dates: start: 20120622, end: 20120816
  19. PL [Concomitant]
     Active Substance: ACETAMINOPHEN\CAFFEINE\PROMETHAZINE\SALICYLAMIDE
     Dosage: 3 G, DAILY
     Route: 048

REACTIONS (17)
  - Asthma [Recovered/Resolved]
  - Blood pressure diastolic increased [Unknown]
  - Shock [Unknown]
  - Ileus [Recovered/Resolved]
  - Blood triglycerides increased [Unknown]
  - C-reactive protein increased [Unknown]
  - Ileus [Unknown]
  - Bronchitis [Recovered/Resolved]
  - Condition aggravated [Recovering/Resolving]
  - White blood cell count increased [Unknown]
  - Drug effect incomplete [Unknown]
  - Constipation [Recovered/Resolved]
  - Aspartate aminotransferase increased [Unknown]
  - Heart rate increased [Unknown]
  - Constipation [Recovering/Resolving]
  - Blood glucose decreased [Unknown]
  - Blood potassium decreased [Unknown]

NARRATIVE: CASE EVENT DATE: 20140902
